FAERS Safety Report 4864955-3 (Version None)
Quarter: 2005Q4

REPORT INFORMATION
  Report Type: 
  Country: None (occurrence: None)
  Receive Date: 20051214
  Receipt Date: 20051123
  Transmission Date: 20060501
  Serious: Yes (Death, Hospitalization)
  Sender: FDA-Public Use
  Company Number: GAM-076-05-D

PATIENT
  Sex: Female

DRUGS (4)
  1. OCTAGAM [Suspect]
     Indication: SECONDARY IMMUNODEFICIENCY
     Dosage: 200 ML (10GM) IV
     Route: 042
     Dates: start: 20050922
  2. ACYCLOVIR [Concomitant]
  3. TRIMETHOPRIM + SULFAMETHOXAZOL [Concomitant]
  4. PANTOZOL [Concomitant]

REACTIONS (6)
  - ACUTE RESPIRATORY DISTRESS SYNDROME [None]
  - CLOSTRIDIUM COLITIS [None]
  - DIFFUSE ALVEOLAR DAMAGE [None]
  - LUNG INFILTRATION [None]
  - NECROTISING COLITIS [None]
  - VOMITING [None]
